FAERS Safety Report 20308228 (Version 1)
Quarter: 2022Q1

REPORT INFORMATION
  Report Type: Spontaneous
  Country: GB (occurrence: GB)
  Receive Date: 20220107
  Receipt Date: 20220107
  Transmission Date: 20220423
  Serious: Yes (Hospitalization, Other)
  Sender: FDA-Public Use
  Company Number: None

PATIENT
  Age: 68 Year
  Sex: Female
  Weight: 90 kg

DRUGS (1)
  1. CARBOPLATIN [Suspect]
     Active Substance: CARBOPLATIN
     Indication: Ovarian cancer
     Dosage: 890MG (200MLS INTO THE INFUSION)
     Route: 042
     Dates: start: 20211209, end: 20211209

REACTIONS (10)
  - Anaphylactic reaction [Recovering/Resolving]
  - Malaise [Recovering/Resolving]
  - Abdominal pain upper [Recovering/Resolving]
  - Back pain [Recovering/Resolving]
  - Cold sweat [Recovering/Resolving]
  - Hyperhidrosis [Recovering/Resolving]
  - Unresponsive to stimuli [Recovering/Resolving]
  - Respiratory rate decreased [Recovering/Resolving]
  - Blood pressure increased [Recovering/Resolving]
  - Somnolence [Recovering/Resolving]

NARRATIVE: CASE EVENT DATE: 20211209
